FAERS Safety Report 7763165-X (Version None)
Quarter: 2011Q3

REPORT INFORMATION
  Report Type: 
  Country: None (occurrence: None)
  Receive Date: 20110920
  Receipt Date: 20110912
  Transmission Date: 20111222
  Serious: Yes (Hospitalization, Other)
  Sender: FDA-Public Use
  Company Number: PHEH2009US16949

PATIENT
  Sex: Female

DRUGS (16)
  1. PRILOSEC [Concomitant]
  2. ULTRAM [Concomitant]
  3. NEURONTIN [Concomitant]
     Dosage: 300 MG, BID
     Route: 048
  4. DYAZIDE [Concomitant]
  5. ARIMIDEX [Concomitant]
  6. FEMARA [Concomitant]
  7. DEMEROL [Concomitant]
  8. AREDIA [Suspect]
  9. PREMARIN [Concomitant]
  10. CALCIUM CARBONATE [Concomitant]
  11. DILAUDID [Concomitant]
  12. LORTAB [Concomitant]
  13. ZOFRAN [Concomitant]
  14. PHENERGAN HCL [Concomitant]
  15. VANCOMYCIN [Concomitant]
  16. TYLENOL-500 [Concomitant]

REACTIONS (21)
  - PAIN [None]
  - ANXIETY [None]
  - HYPERTONIC BLADDER [None]
  - INJURY [None]
  - OSTEONECROSIS OF JAW [None]
  - LIPOMA [None]
  - CHEST PAIN [None]
  - ARTHRALGIA [None]
  - PULMONARY EMBOLISM [None]
  - OSTEOPENIA [None]
  - STRESS FRACTURE [None]
  - MENINGITIS [None]
  - DECREASED INTEREST [None]
  - FIBROMYALGIA [None]
  - HYPERTENSION [None]
  - OSTEOMYELITIS [None]
  - BREAST CANCER [None]
  - OSTEOPOROSIS [None]
  - BRONCHITIS [None]
  - MASS [None]
  - CHRONIC OBSTRUCTIVE PULMONARY DISEASE [None]
